FAERS Safety Report 5622455-7 (Version None)
Quarter: 2008Q1

REPORT INFORMATION
  Report Type: 
  Country: None (occurrence: None)
  Receive Date: 20080114
  Receipt Date: 20070905
  Transmission Date: 20080703
  Serious: Yes (Other)
  Sender: FDA-Public Use
  Company Number: A03200705454

PATIENT
  Age: 49 Year
  Sex: Male

DRUGS (6)
  1. PLAVIX [Suspect]
     Indication: STENT PLACEMENT
     Dosage: 75 MG QD - ORAL
     Route: 048
     Dates: start: 20070701
  2. METOPROLOL TARTRATE [Concomitant]
  3. LISINOPRIL [Concomitant]
  4. LANSOPRAZOLE [Concomitant]
  5. ACETYLSALICYLIC ACID SRT [Concomitant]
  6. SEVELAMER HYDROCHLORIDE [Concomitant]

REACTIONS (1)
  - HAEMOPTYSIS [None]
